FAERS Safety Report 14949717 (Version 2)
Quarter: 2018Q2

REPORT INFORMATION
  Report Type: Spontaneous
  Country: US (occurrence: US)
  Receive Date: 20180529
  Receipt Date: 20180615
  Transmission Date: 20180711
  Serious: No
  Sender: FDA-Public Use
  Company Number: US-BRISTOL-MYERS SQUIBB COMPANY-BMS-2018-049586

PATIENT
  Age: 54 Year
  Sex: Male

DRUGS (1)
  1. SPRYCEL [Suspect]
     Active Substance: DASATINIB
     Indication: CHRONIC MYELOID LEUKAEMIA
     Dosage: 20 MG, BID
     Route: 065
     Dates: start: 20160202

REACTIONS (3)
  - Hypersensitivity [Unknown]
  - Peripheral swelling [Unknown]
  - Off label use [Unknown]

NARRATIVE: CASE EVENT DATE: 20180501
